FAERS Safety Report 5474795-2 (Version None)
Quarter: 2007Q4

REPORT INFORMATION
  Report Type: 
  Country: None (occurrence: None)
  Receive Date: 20071002
  Receipt Date: 20070927
  Transmission Date: 20080405
  Serious: Yes (Disabling)
  Sender: FDA-Public Use
  Company Number: B0488831A

PATIENT
  Age: 64 Year
  Sex: Female

DRUGS (4)
  1. ARIXTRA [Suspect]
     Indication: THROMBOSIS PROPHYLAXIS
     Dosage: 2.5MG PER DAY
     Route: 058
     Dates: start: 20070911, end: 20070923
  2. KEFRAL [Concomitant]
     Dosage: 500MG THREE TIMES PER DAY
     Route: 048
  3. SOLETON [Concomitant]
     Dosage: 3 PER DAY
     Route: 048
  4. MUCOSTA [Concomitant]
     Dosage: 3 PER DAY
     Route: 048

REACTIONS (1)
  - URTICARIA [None]
